FAERS Safety Report 7651491-4 (Version None)
Quarter: 2011Q3

REPORT INFORMATION
  Report Type: 
  Country: None (occurrence: None)
  Receive Date: 20110802
  Receipt Date: 20110725
  Transmission Date: 20111222
  Serious: Yes (Other)
  Sender: FDA-Public Use
  Company Number: PHEH2009US00447

PATIENT
  Sex: Male

DRUGS (2)
  1. ZOMETA [Suspect]
     Indication: BONE LOSS
  2. ZOMETA [Suspect]
     Indication: OSTEOPOROSIS

REACTIONS (14)
  - AORTIC CALCIFICATION [None]
  - VASCULAR CALCIFICATION [None]
  - COMPRESSION FRACTURE [None]
  - INTERVERTEBRAL DISC DEGENERATION [None]
  - THYROID NEOPLASM [None]
  - HIATUS HERNIA [None]
  - ATELECTASIS [None]
  - DIVERTICULUM INTESTINAL [None]
  - BONE LESION [None]
  - LYMPHADENOPATHY [None]
  - TONSILLAR DISORDER [None]
  - FACET JOINT SYNDROME [None]
  - FACIAL BONES FRACTURE [None]
  - OSTEONECROSIS OF JAW [None]
